FAERS Safety Report 17735879 (Version 2)
Quarter: 2024Q2

REPORT INFORMATION
  Report Type: Spontaneous
  Country: IT (occurrence: IT)
  Receive Date: 20200501
  Receipt Date: 20240521
  Transmission Date: 20240716
  Serious: Yes (Hospitalization, Other)
  Sender: FDA-Public Use
  Company Number: IT-COOP-033-20

PATIENT
  Age: 35 Year
  Sex: Female

DRUGS (5)
  1. SERTRALINE [Suspect]
     Active Substance: SERTRALINE HYDROCHLORIDE
     Indication: Panic attack
     Dosage: 25 MILLIGRAM, QD
     Route: 065
  2. ACETAMINOPHEN [Suspect]
     Active Substance: ACETAMINOPHEN
     Indication: Headache
     Dosage: QD (2-4 G DAILY IN THE FIRST TRIMESTER)
     Route: 065
  3. ACETAMINOPHEN [Suspect]
     Active Substance: ACETAMINOPHEN
     Dosage: QD (1-2 G OCCASIONALLY IN THE SECOND AND THIRD TRIMESTER)
     Route: 065
  4. DIAZEPAM [Suspect]
     Active Substance: DIAZEPAM
     Indication: Panic attack
     Dosage: QD (1-2 MG/DAY)
     Route: 065
  5. LORAZEPAM [Suspect]
     Active Substance: LORAZEPAM
     Indication: Panic attack
     Dosage: 10 DROPS (1/12 MILLILITRE), QD
     Route: 065

REACTIONS (13)
  - Drug abuse [Unknown]
  - Caesarean section [Unknown]
  - Premature delivery [Recovered/Resolved]
  - Hypoxia [Unknown]
  - Tricuspid valve incompetence [Unknown]
  - Ductus arteriosus premature closure [Unknown]
  - Pulmonary hypertension [Unknown]
  - Pulmonary valve incompetence [Unknown]
  - Cardiac disorder [Unknown]
  - Ventricular compliance decreased [Unknown]
  - Premature baby [Unknown]
  - Cardiomegaly [Unknown]
  - Exposure during pregnancy [Unknown]
